FAERS Safety Report 14977735 (Version 1)
Quarter: 2018Q2

REPORT INFORMATION
  Report Type: Spontaneous
  Country: US (occurrence: US)
  Receive Date: 20180514
  Receipt Date: 20180514
  Transmission Date: 20180711
  Serious: No
  Sender: FDA-Public Use
  Company Number: None

PATIENT
  Weight: 75.5 kg

DRUGS (10)
  1. NEURONTIN [Concomitant]
     Active Substance: GABAPENTIN
  2. CARFLIZOMIB [Suspect]
     Active Substance: CARFILZOMIB
  3. REVLIMID [Suspect]
     Active Substance: LENALIDOMIDE
  4. DEXAMETHASONE. [Suspect]
     Active Substance: DEXAMETHASONE
  5. TRIAMCINOLONE ACETONIDE. [Concomitant]
     Active Substance: TRIAMCINOLONE ACETONIDE
  6. HYDROCODONE/ACETAMINOPEHN (NORCO) [Concomitant]
  7. VITAMIN B-12, CYANOCOBALAMIN [Concomitant]
  8. LIPITOR [Concomitant]
     Active Substance: ATORVASTATIN CALCIUM
  9. DENOSUMAB [Suspect]
     Active Substance: DENOSUMAB
  10. NIFEDIPINE (ADALAT CC) [Concomitant]

REACTIONS (2)
  - Hypocalcaemia [None]
  - Muscle spasms [None]
